FAERS Safety Report 10306292 (Version 1)
Quarter: 2014Q3

REPORT INFORMATION
  Report Type: Spontaneous
  Country: JP (occurrence: JP)
  Receive Date: 20140715
  Receipt Date: 20140715
  Transmission Date: 20150326
  Serious: Yes (Other)
  Sender: FDA-Public Use
  Company Number: PHHY2014JP080017

PATIENT
  Age: 64 Year
  Sex: Female
  Weight: 50.5 kg

DRUGS (2)
  1. SANDOSTATIN LAR DEPOT [Suspect]
     Active Substance: OCTREOTIDE ACETATE
     Indication: ACROMEGALY
     Dosage: 20 MG, UNK
     Route: 030
  2. SANDOSTATIN [Suspect]
     Active Substance: OCTREOTIDE ACETATE
     Route: 058

REACTIONS (2)
  - Platelet count decreased [Unknown]
  - Liver function test abnormal [Unknown]
